FAERS Safety Report 5425572-X (Version None)
Quarter: 2007Q3

REPORT INFORMATION
  Report Type: 
  Country: None (occurrence: None)
  Receive Date: 20070824
  Receipt Date: 20070816
  Transmission Date: 20080115
  Serious: Yes (Other)
  Sender: FDA-Public Use
  Company Number: SI-PFIZER INC-2007066098

PATIENT
  Age: 50 Year
  Sex: Female

DRUGS (1)
  1. XANAX [Suspect]
     Indication: SUICIDAL IDEATION
     Dosage: DAILY DOSE:30MG
     Route: 048

REACTIONS (2)
  - NO ADVERSE REACTION [None]
  - OVERDOSE [None]
